FAERS Safety Report 9156922 (Version 3)
Quarter: 2013Q2

REPORT INFORMATION
  Report Type: Spontaneous
  Country: US (occurrence: US)
  Receive Date: 20130312
  Receipt Date: 20130411
  Transmission Date: 20140414
  Serious: Yes (Hospitalization, Other)
  Sender: FDA-Public Use
  Company Number: PHEH2013US005517

PATIENT
  Sex: Male
  Weight: 76.64 kg

DRUGS (5)
  1. GLEEVEC [Suspect]
     Dosage: 400 MG DAILY
  2. GLEEVEC [Suspect]
     Dosage: UNK UKN, UNK
  3. LASIX [Concomitant]
  4. LABETALOL [Concomitant]
  5. OMEGA 3 FISH [Concomitant]

REACTIONS (7)
  - Pericardial effusion [Unknown]
  - Neoplasm [Unknown]
  - Gastrointestinal stromal tumour [Unknown]
  - Malignant neoplasm progression [Unknown]
  - Drug ineffective [Unknown]
  - Blood pressure increased [Unknown]
  - Chest pain [Unknown]
